FAERS Safety Report 12643005 (Version 1)
Quarter: 2016Q3

REPORT INFORMATION
  Report Type: Spontaneous
  Country: US (occurrence: US)
  Receive Date: 20160811
  Receipt Date: 20160811
  Transmission Date: 20161109
  Serious: No
  Sender: FDA-Public Use
  Company Number: US-TEVA-680721ACC

PATIENT
  Sex: Female

DRUGS (1)
  1. PARAGARD T 380A [Suspect]
     Active Substance: COPPER
     Dates: start: 20160715, end: 20160715

REACTIONS (3)
  - Complication associated with device [Unknown]
  - Pain [Unknown]
  - Discomfort [Unknown]

NARRATIVE: CASE EVENT DATE: 20160715
